FAERS Safety Report 24081294 (Version 2)
Quarter: 2024Q3

REPORT INFORMATION
  Report Type: Spontaneous
  Country: AU (occurrence: AU)
  Receive Date: 20240711
  Receipt Date: 20240918
  Transmission Date: 20241016
  Serious: Yes (Other)
  Sender: MERCK
  Company Number: AU-009507513-2407AUS004576

PATIENT
  Age: 54 Year
  Sex: Female

DRUGS (3)
  1. POSACONAZOLE [Suspect]
     Active Substance: POSACONAZOLE
     Indication: Fungal infection
     Dosage: UNK
     Route: 048
  2. POSACONAZOLE [Suspect]
     Active Substance: POSACONAZOLE
     Dosage: UNK
     Route: 048
  3. VORICONAZOLE [Suspect]
     Active Substance: VORICONAZOLE
     Indication: Fungal infection
     Dosage: UNK

REACTIONS (7)
  - Electrocardiogram QT prolonged [Unknown]
  - Bowen^s disease [Unknown]
  - Skin cancer [Unknown]
  - Alopecia [Unknown]
  - Fatigue [Unknown]
  - Brain fog [Unknown]
  - Hypophosphataemia [Unknown]
